FAERS Safety Report 9602571 (Version 2)
Quarter: 2013Q4

REPORT INFORMATION
  Report Type: Spontaneous
  Country: US (occurrence: US)
  Receive Date: 20131007
  Receipt Date: 20131025
  Transmission Date: 20140711
  Serious: Yes (Other)
  Sender: FDA-Public Use
  Company Number: US-PFIZER INC-2013283662

PATIENT
  Age: 54 Year
  Sex: Male
  Weight: 106 kg

DRUGS (17)
  1. NICOTROL NASAL SPRAY [Suspect]
     Indication: SMOKING CESSATION THERAPY
     Dosage: UNK
     Route: 045
     Dates: start: 2013, end: 20130930
  2. MAXALT [Concomitant]
     Indication: CLUSTER HEADACHE
     Dosage: 5 MG, AS NEEDED
  3. LEVETIRACETAM [Concomitant]
     Indication: CONVULSION
     Dosage: 500 MG, 2X/DAY
  4. AMLODIPINE BESILATE [Concomitant]
     Indication: HYPERTENSION
     Dosage: 10 MG, DAILY
  5. OMEPRAZOLE [Concomitant]
     Indication: GASTROOESOPHAGEAL REFLUX DISEASE
     Dosage: 20 MG, DAILY
  6. GABAPENTIN [Concomitant]
     Indication: CONVULSION
     Dosage: 600 MG, 3X/DAY
  7. BUTALBITAL/CAFFEINE/CODEINE PHOSPHATE/PARACETAMOL [Concomitant]
     Indication: EYE PAIN
     Dosage: 30 MG, AS NEEDED
  8. HYDROCODONE W/ACETAMINOPHEN [Concomitant]
     Indication: PROCEDURAL PAIN
     Dosage: HYDROCODONE10 MG/ACETAMINOPHEN 325 MG, 3X/DAY
     Route: 048
  9. TAMSULOSIN [Concomitant]
     Dosage: 0.4 MG, DAILY
  10. LAMOTRIGINE [Concomitant]
     Indication: CONVULSION
     Dosage: 100 MG, 2X/DAY
  11. ATORVASTATIN CALCIUM [Concomitant]
     Indication: HYPERTENSION
     Dosage: 40 MG, 2X/DAY
  12. VIMPAT [Concomitant]
     Indication: CONVULSION
     Dosage: 100 MG, 2X/DAY
  13. LEXAPRO [Concomitant]
     Indication: DEPRESSION
     Dosage: 20 MG, DAILY
  14. LYRICA [Concomitant]
     Indication: PAIN
     Dosage: 100 MG, 3X/DAY
  15. NORTRIPTYLINE [Concomitant]
     Indication: SLEEP DISORDER
     Dosage: 25 MG, DAILY
  16. TIZANIDINE [Concomitant]
     Indication: PROCEDURAL PAIN
     Dosage: 40 MG, UNK
  17. PRIMIDONE [Concomitant]
     Indication: CONVULSION
     Dosage: 50 MG, 2X/DAY

REACTIONS (2)
  - Eye haemorrhage [Unknown]
  - Renal failure [Unknown]
